FAERS Safety Report 7664839-1 (Version None)
Quarter: 2011Q3

REPORT INFORMATION
  Report Type: 
  Country: None (occurrence: None)
  Receive Date: 20110806
  Receipt Date: 20110201
  Transmission Date: 20111222
  Serious: No
  Sender: FDA-Public Use
  Company Number: US-ABBOTT-11P-163-0702793-00

PATIENT
  Age: 50 Year
  Sex: Male
  Weight: 94.432 kg

DRUGS (5)
  1. GABAPENTIN [Suspect]
     Indication: NECK PAIN
     Route: 048
  2. GABAPENTIN [Suspect]
     Indication: MUSCULOSKELETAL STIFFNESS
  3. UNKNOWN MUSCLE RELAXER [Concomitant]
     Indication: NECK PAIN
  4. UNKNOWN MUSCLE RELAXER [Concomitant]
     Indication: MUSCULOSKELETAL STIFFNESS
  5. NIASPAN [Suspect]
     Indication: BLOOD CHOLESTEROL INCREASED
     Dosage: AT BEDTIME
     Route: 048

REACTIONS (3)
  - ERYTHEMA [None]
  - PRURITUS [None]
  - BURNING SENSATION [None]
